FAERS Safety Report 6342119-4 (Version None)
Quarter: 2009Q3

REPORT INFORMATION
  Report Type: 
  Country: None (occurrence: None)
  Receive Date: 20090903
  Receipt Date: 20090903
  Transmission Date: 20100115
  Serious: No
  Sender: FDA-Public Use
  Company Number: None

PATIENT
  Age: 13 Year
  Sex: Female

DRUGS (1)
  1. OXCARBAZEPINE [Suspect]
     Indication: CONVULSION
     Dosage: 600 MG 2X/DAY PO
     Route: 048
     Dates: start: 20090610, end: 20090713

REACTIONS (2)
  - HYPERSOMNIA [None]
  - SOMNOLENCE [None]
